FAERS Safety Report 9017976 (Version 4)
Quarter: 2014Q1

REPORT INFORMATION
  Report Type: Spontaneous
  Country: ES (occurrence: ES)
  Receive Date: 20130118
  Receipt Date: 20140314
  Transmission Date: 20141002
  Serious: Yes (Hospitalization, Other)
  Sender: FDA-Public Use
  Company Number: ES-009507513-1211ESP003530

PATIENT
  Age: 35 Year
  Sex: Female
  Weight: 56.5 kg

DRUGS (7)
  1. ISENTRESS [Suspect]
     Indication: HIV INFECTION
     Dosage: 400 MG, Q12H
     Route: 048
     Dates: start: 201011
  2. PREZISTA [Suspect]
     Indication: HIV INFECTION
     Dosage: 600 MG, Q12H
     Route: 048
     Dates: start: 201011
  3. INTELENCE [Suspect]
     Indication: HIV INFECTION
     Dosage: 200 MG, Q12H
     Route: 048
     Dates: start: 201011
  4. NORVIR [Suspect]
     Indication: HIV INFECTION
     Dosage: 400 MG, QD
     Route: 048
     Dates: start: 201011
  5. TEGRETOL [Suspect]
     Indication: EPILEPSY
     Dosage: UNK
     Route: 048
  6. TEGRETOL [Suspect]
     Dosage: 100MG IN THE MORNING, 200MG AT NIGHT
     Route: 048
     Dates: start: 201011
  7. ACFOL [Suspect]
     Indication: PROPHYLAXIS
     Dosage: 5 MG (EVERY 24 H)
     Route: 048
     Dates: start: 201211, end: 201212

REACTIONS (4)
  - Abortion missed [Recovered/Resolved]
  - Abortion threatened [Recovered/Resolved]
  - Exposure during pregnancy [Recovered/Resolved]
  - Uterine dilation and curettage [Recovered/Resolved]
